FAERS Safety Report 5233351-1 (Version None)
Quarter: 2007Q1

REPORT INFORMATION
  Report Type: 
  Country: None (occurrence: None)
  Receive Date: 20070206
  Receipt Date: 20070206
  Transmission Date: 20070707
  Serious: Yes (Other)
  Sender: FDA-Public Use
  Company Number: None

PATIENT
  Sex: Male
  Weight: 74.8435 kg

DRUGS (10)
  1. JANUVIA [Suspect]
     Indication: DIABETES MELLITUS NON-INSULIN-DEPENDENT
     Dates: start: 20061110, end: 20070201
  2. METFORMIN HCL [Concomitant]
  3. SIMVASTATIN [Concomitant]
  4. FLUTICASONE PROPIONATE [Concomitant]
  5. IPRATROPIUM BROMIDE [Concomitant]
  6. FLOVENT HFA MDI 220 MCG/ACTUATION [Concomitant]
  7. LANSOPRAZOLE [Concomitant]
  8. FINASTERIDE [Concomitant]
  9. ALBUTEROL [Concomitant]
  10. ASPIRIN [Concomitant]

REACTIONS (6)
  - ASTHMA [None]
  - NASAL MUCOSA ATROPHY [None]
  - ORAL CANDIDIASIS [None]
  - POSTNASAL DRIP [None]
  - RHINITIS [None]
  - WHEEZING [None]
